FAERS Safety Report 9272100 (Version 1)
Quarter: 2013Q2

REPORT INFORMATION
  Report Type: Spontaneous
  Country: US (occurrence: US)
  Receive Date: 20130506
  Receipt Date: 20130506
  Transmission Date: 20140414
  Serious: No
  Sender: FDA-Public Use
  Company Number: US-ASTRAZENECA-2013SE26231

PATIENT
  Age: 62 Year
  Sex: 0

DRUGS (3)
  1. SEROQUEL XR [Suspect]
     Route: 048
     Dates: end: 201211
  2. SEROQUEL XR [Suspect]
     Route: 048
     Dates: start: 201211
  3. ADDERAL [Concomitant]

REACTIONS (2)
  - Bipolar I disorder [Unknown]
  - Tardive dyskinesia [Unknown]
